FAERS Safety Report 17257130 (Version 1)
Quarter: 2020Q1

REPORT INFORMATION
  Report Type: Spontaneous
  Country: DK (occurrence: DK)
  Receive Date: 20200110
  Receipt Date: 20200110
  Transmission Date: 20200409
  Serious: Yes (Other)
  Sender: FDA-Public Use
  Company Number: DK-SAMSUNG BIOEPIS-SB-2019-40802

PATIENT
  Age: 71 Year
  Sex: Male
  Weight: 68 kg

DRUGS (1)
  1. IMRALDI [Suspect]
     Active Substance: ADALIMUMAB
     Indication: NAIL PSORIASIS
     Route: 058
     Dates: start: 20181218

REACTIONS (3)
  - Tonsil cancer [Unknown]
  - Product use in unapproved indication [Unknown]
  - Product use issue [Unknown]

NARRATIVE: CASE EVENT DATE: 20190912
